FAERS Safety Report 7384034-3 (Version None)
Quarter: 2011Q1

REPORT INFORMATION
  Report Type: 
  Country: None (occurrence: None)
  Receive Date: 20110330
  Receipt Date: 20110328
  Transmission Date: 20110831
  Serious: Yes (Hospitalization, Other)
  Sender: FDA-Public Use
  Company Number: AU-ABBOTT-11P-008-0714777-00

PATIENT
  Sex: Male

DRUGS (1)
  1. EPILIM [Suspect]
     Indication: MUSCLE SPASMS
     Route: 065
     Dates: start: 20040101

REACTIONS (4)
  - LOSS OF CONSCIOUSNESS [None]
  - CONDITION AGGRAVATED [None]
  - EXTRASYSTOLES [None]
  - HYPERSENSITIVITY [None]
